FAERS Safety Report 14259043 (Version 1)
Quarter: 2017Q4

REPORT INFORMATION
  Report Type: Spontaneous
  Country: US (occurrence: US)
  Receive Date: 20171207
  Receipt Date: 20171207
  Transmission Date: 20180321
  Serious: Yes (Life-Threatening, Hospitalization)
  Sender: FDA-Public Use
  Company Number: None

PATIENT
  Sex: Male
  Weight: 11.25 kg

DRUGS (7)
  1. AMOXICILLIN. [Concomitant]
     Active Substance: AMOXICILLIN
  2. NATURES SUNSHINE CHILDREN^S MULTI VITAMIN [Concomitant]
  3. ACETAMINOPHEN AND CODEINE [Suspect]
     Active Substance: ACETAMINOPHEN\CODEINE PHOSPHATE
     Indication: FALL
     Dosage: ?          QUANTITY:2 ML;?
     Route: 048
     Dates: start: 20161129, end: 20161130
  4. ACETAMINOPHEN AND CODEINE [Suspect]
     Active Substance: ACETAMINOPHEN\CODEINE PHOSPHATE
     Indication: LIP SWELLING
     Dosage: ?          QUANTITY:2 ML;?
     Route: 048
     Dates: start: 20161129, end: 20161130
  5. ALBUTEROL. [Concomitant]
     Active Substance: ALBUTEROL
  6. ELDERBERRY IMMUNE SUPPORT [Concomitant]
  7. IBUPROFEN. [Concomitant]
     Active Substance: IBUPROFEN

REACTIONS (3)
  - Nasopharyngitis [None]
  - Dyspnoea [None]
  - Pneumonia [None]
